FAERS Safety Report 7718913-1 (Version None)
Quarter: 2011Q3

REPORT INFORMATION
  Report Type: 
  Country: None (occurrence: None)
  Receive Date: 20110824
  Receipt Date: 20110810
  Transmission Date: 20111222
  Serious: Yes (Hospitalization)
  Sender: FDA-Public Use
  Company Number: 7074898

PATIENT
  Age: 52 Year
  Sex: Male

DRUGS (1)
  1. LEVOTHYROXINE SODIUM [Suspect]
     Indication: MYXOEDEMA
     Dosage: 50,25,100,150  MCG, ORAL
     Route: 048
     Dates: start: 20110301

REACTIONS (3)
  - CARDIAC VALVE DISEASE [None]
  - TREMOR [None]
  - GRIP STRENGTH DECREASED [None]
